FAERS Safety Report 18351392 (Version 3)
Quarter: 2021Q1

REPORT INFORMATION
  Report Type: Spontaneous
  Country: TW (occurrence: TW)
  Receive Date: 20201006
  Receipt Date: 20210107
  Transmission Date: 20210419
  Serious: Yes (Death, Hospitalization, Other)
  Sender: FDA-Public Use
  Company Number: TW-BRISTOL-MYERS SQUIBB COMPANY-BMS-2020-080833

PATIENT
  Age: 48 Year
  Sex: Male
  Weight: 77 kg

DRUGS (2)
  1. OPDIVO [Suspect]
     Active Substance: NIVOLUMAB
     Indication: HEPATIC CANCER
     Dosage: 60 MILLIGRAM, Q3WK
     Route: 041
     Dates: start: 20200825
  2. SORAFENIB [Concomitant]
     Active Substance: SORAFENIB
     Indication: HEPATIC CANCER
     Dosage: 200 MILLIGRAM, QD
     Route: 048
     Dates: start: 20200901

REACTIONS (4)
  - Malignant neoplasm progression [Fatal]
  - Off label use [Unknown]
  - Hepatorenal syndrome [Not Recovered/Not Resolved]
  - Prescribed underdose [Unknown]

NARRATIVE: CASE EVENT DATE: 20200923
